FAERS Safety Report 8984969 (Version 1)
Quarter: 2012Q4

REPORT INFORMATION
  Report Type: 
  Country: JP (occurrence: JP)
  Receive Date: 20121226
  Receipt Date: 20121226
  Transmission Date: 20130627
  Serious: Yes (Hospitalization)
  Sender: FDA-Public Use
  Company Number: PHHY2012JP118361

PATIENT

DRUGS (2)
  1. EXELON PATCH [Suspect]
     Indication: DEMENTIA ALZHEIMER^S TYPE
     Dosage: 4.5 mg, daily
     Route: 062
  2. EXELON PATCH [Suspect]
     Dosage: 13.5 mg, daily
     Route: 062
     Dates: end: 20121107

REACTIONS (1)
  - General physical health deterioration [Unknown]
